FAERS Safety Report 6071818-7 (Version None)
Quarter: 2009Q1

REPORT INFORMATION
  Report Type: 
  Country: None (occurrence: None)
  Receive Date: 20090210
  Receipt Date: 20090203
  Transmission Date: 20090719
  Serious: Yes (Death, Other)
  Sender: FDA-Public Use
  Company Number: PHBS2009KR00716

PATIENT
  Age: 27 Year
  Sex: Male

DRUGS (5)
  1. CYCLOSPORINE [Suspect]
     Indication: STEM CELL TRANSPLANT
     Dosage: 1.5 MG/KG, Q12H
     Route: 042
  2. CYCLOSPORINE [Suspect]
     Route: 048
  3. FK 506 [Suspect]
  4. GLUCOCORTICOSTEROIDS [Concomitant]
  5. METHOTREXATE [Concomitant]

REACTIONS (5)
  - ACUTE GRAFT VERSUS HOST DISEASE [None]
  - ACUTE LYMPHOCYTIC LEUKAEMIA RECURRENT [None]
  - CYTOMEGALOVIRUS INFECTION [None]
  - PNEUMONIA [None]
  - STAPHYLOCOCCAL SEPSIS [None]
